FAERS Safety Report 10247918 (Version 1)
Quarter: 2014Q2

REPORT INFORMATION
  Report Type: Spontaneous
  Country: FR (occurrence: FR)
  Receive Date: 20140619
  Receipt Date: 20140619
  Transmission Date: 20141212
  Serious: Yes (Other)
  Sender: FDA-Public Use
  Company Number: FR-BAXTER-2014BAX032801

PATIENT
  Sex: Female

DRUGS (7)
  1. ENDOXAN 1000 MG, POUDRE POUR SOLUTION INJECTABLE [Suspect]
     Indication: INVASIVE DUCTAL BREAST CARCINOMA
     Route: 065
  2. EPIRUBICIN [Suspect]
     Indication: INVASIVE DUCTAL BREAST CARCINOMA
     Route: 065
  3. 5-FLUOROURACIL [Suspect]
     Indication: INVASIVE DUCTAL BREAST CARCINOMA
     Route: 065
  4. 5-FLUOROURACIL [Suspect]
     Indication: METASTASES TO BONE
  5. 5-FLUOROURACIL [Suspect]
     Indication: METASTASES TO PLEURA
  6. VINORELBINE [Concomitant]
     Indication: INVASIVE DUCTAL BREAST CARCINOMA
     Route: 065
  7. TRASTUZUMAB [Concomitant]
     Indication: INVASIVE DUCTAL BREAST CARCINOMA
     Route: 065

REACTIONS (1)
  - Lymphangiosis carcinomatosa [Unknown]
